FAERS Safety Report 15701059 (Version 3)
Quarter: 2019Q1

REPORT INFORMATION
  Report Type: Report from Study
  Country: IE (occurrence: IE)
  Receive Date: 20181207
  Receipt Date: 20190116
  Transmission Date: 20190417
  Serious: Yes (Other)
  Sender: FDA-Public Use
  Company Number: PHHY2018IE148097

PATIENT
  Age: 38 Year
  Sex: Female

DRUGS (1)
  1. GILENYA [Suspect]
     Active Substance: FINGOLIMOD HYDROCHLORIDE
     Indication: RELAPSING-REMITTING MULTIPLE SCLEROSIS
     Dosage: 0.5 MG, UNK
     Route: 048
     Dates: start: 20181031

REACTIONS (11)
  - Eye pain [Unknown]
  - Bradycardia [Recovering/Resolving]
  - Hangover [Recovering/Resolving]
  - Dizziness [Recovering/Resolving]
  - Visual impairment [Unknown]
  - Palpitations [Recovering/Resolving]
  - Anxiety [Recovering/Resolving]
  - Visual field defect [Unknown]
  - Blood pressure fluctuation [Unknown]
  - Optic neuritis [Unknown]
  - Vision blurred [Unknown]

NARRATIVE: CASE EVENT DATE: 20181031
